FAERS Safety Report 12119528 (Version 1)
Quarter: 2016Q1

REPORT INFORMATION
  Report Type: Spontaneous
  Country: CA (occurrence: CA)
  Receive Date: 20160226
  Receipt Date: 20160226
  Transmission Date: 20160526
  Serious: Yes (Other)
  Sender: FDA-Public Use
  Company Number: CA-PFIZER INC-2016110901

PATIENT
  Sex: Male

DRUGS (1)
  1. CHILDRENS ADVIL [Suspect]
     Active Substance: IBUPROFEN
     Dosage: UNK
     Dates: start: 20160127

REACTIONS (2)
  - Seizure [Unknown]
  - Respiratory arrest [Unknown]

NARRATIVE: CASE EVENT DATE: 20160127
